FAERS Safety Report 19652623 (Version 2)
Quarter: 2023Q2

REPORT INFORMATION
  Report Type: Spontaneous
  Country: US (occurrence: US)
  Receive Date: 20210803
  Receipt Date: 20230621
  Transmission Date: 20230722
  Serious: Yes (Other)
  Sender: FDA-Public Use
  Company Number: US-PFIZER INC-202100928115

PATIENT
  Age: 57 Year
  Sex: Female
  Weight: 108.85 kg

DRUGS (10)
  1. SUTENT [Suspect]
     Active Substance: SUNITINIB MALATE
     Indication: Gastrointestinal stromal tumour
     Dosage: 50 MG, DAILY FOR 4 WEEKS OF EVERY 6 WEEKS (2 WEEKS ON THEN ONE WEEK OFF. THEN REPEAT CYCLE)
     Route: 048
     Dates: start: 202008
  2. POTASSIUM CHLORIDE [Concomitant]
     Active Substance: POTASSIUM CHLORIDE
  3. DEXAMETHASONE [Concomitant]
     Active Substance: DEXAMETHASONE
     Dosage: 0.5 MG
  4. ZOFRAN [Concomitant]
     Active Substance: ONDANSETRON HYDROCHLORIDE
     Dosage: 4 MG
  5. LOVASTATIN [Concomitant]
     Active Substance: LOVASTATIN
     Dosage: 10 MG
  6. OMEPRAZOLE [Concomitant]
     Active Substance: OMEPRAZOLE
     Dosage: 10 MG
  7. VITAMIN D2 [Concomitant]
     Active Substance: ERGOCALCIFEROL
     Dosage: 10 UG
  8. AMLODIPINE BESYLATE [Concomitant]
     Active Substance: AMLODIPINE BESYLATE
     Dosage: 10 MG
  9. LOSARTAN POTASSIUM [Concomitant]
     Active Substance: LOSARTAN POTASSIUM
     Dosage: 100 MG
  10. SENNA S [Concomitant]
     Active Substance: DOCUSATE SODIUM\SENNA LEAF
     Dosage: (8.6MG-50MG) TABLET

REACTIONS (10)
  - Hypertension [Unknown]
  - Nausea [Unknown]
  - Stomatitis [Unknown]
  - Back pain [Unknown]
  - Glossitis [Unknown]
  - Taste disorder [Unknown]
  - Asthenia [Unknown]
  - Blood potassium decreased [Unknown]
  - Tongue movement disturbance [Recovered/Resolved]
  - Glossodynia [Recovered/Resolved]
